FAERS Safety Report 5244602-1 (Version None)
Quarter: 2007Q1

REPORT INFORMATION
  Report Type: 
  Country: None (occurrence: None)
  Receive Date: 20070222
  Receipt Date: 20070208
  Transmission Date: 20070707
  Serious: Yes (Other)
  Sender: FDA-Public Use
  Company Number: US-SHR-US-2007-004677

PATIENT
  Age: 54 Year
  Sex: Female

DRUGS (3)
  1. BETASERON [Suspect]
     Indication: RELAPSING-REMITTING MULTIPLE SCLEROSIS
     Dosage: 8 MIU, EVERY 2D
     Route: 058
     Dates: start: 19940101, end: 20060101
  2. BETASERON [Suspect]
     Dosage: REDUCED DOSE
     Route: 058
     Dates: start: 20060101, end: 20060101
  3. BETASERON [Suspect]
     Dosage: 8 MIU, EVERY 2D
     Route: 058
     Dates: start: 20060101

REACTIONS (2)
  - BREAST CANCER FEMALE [None]
  - WHITE BLOOD CELL COUNT DECREASED [None]
